FAERS Safety Report 5779523-9 (Version None)
Quarter: 2008Q2

REPORT INFORMATION
  Report Type: 
  Country: None (occurrence: None)
  Receive Date: 20080619
  Receipt Date: 20071203
  Transmission Date: 20081010
  Serious: No
  Sender: FDA-Public Use
  Company Number: US-ASTRAZENECA-2007UW27572

PATIENT
  Age: 67 Year
  Sex: Female
  Weight: 61.9 kg

DRUGS (7)
  1. ATACAND [Suspect]
     Indication: HYPERTENSIVE NEPHROPATHY
     Route: 048
  2. SYNTHROID [Concomitant]
  3. ZOLOFT [Concomitant]
  4. VITAMIN E [Concomitant]
  5. ASCORBIC ACID [Concomitant]
  6. MV [Concomitant]
  7. CA+CALCIUM+MAGNESIUM [Concomitant]

REACTIONS (3)
  - ASTHENIA [None]
  - BLOOD ELECTROLYTES DECREASED [None]
  - DIARRHOEA [None]
